FAERS Safety Report 8765441 (Version 1)
Quarter: 2012Q4

REPORT INFORMATION
  Report Type: 
  Country: US (occurrence: US)
  Receive Date: 20120903
  Receipt Date: 20120903
  Transmission Date: 20130627
  Serious: Yes (Other)
  Sender: FDA-Public Use
  Company Number: US-PFIZER INC-2012215212

PATIENT
  Sex: Female

DRUGS (3)
  1. EFFEXOR [Suspect]
     Indication: DEPRESSION
     Dosage: UNK
  2. PRISTIQ [Suspect]
     Indication: DEPRESSION
     Dosage: 100 mg, UNK
  3. PRISTIQ [Suspect]
     Dosage: 50 mg, UNK

REACTIONS (7)
  - Depression [Unknown]
  - Withdrawal syndrome [Unknown]
  - Mood swings [Unknown]
  - Feeling abnormal [Unknown]
  - Somnolence [Unknown]
  - Crying [Unknown]
  - General physical condition abnormal [Unknown]
